FAERS Safety Report 13312373 (Version 1)
Quarter: 2017Q1

REPORT INFORMATION
  Report Type: Spontaneous
  Country: US (occurrence: US)
  Receive Date: 20170309
  Receipt Date: 20170309
  Transmission Date: 20170428
  Serious: No
  Sender: FDA-Public Use
  Company Number: US-WARNER CHILCOTT, LLC-1064063

PATIENT
  Age: 69 Year
  Sex: Female
  Weight: 59.14 kg

DRUGS (5)
  1. ASACOL [Suspect]
     Active Substance: MESALAMINE
     Route: 048
     Dates: start: 1998
  2. ASACOL HD [Suspect]
     Active Substance: MESALAMINE
     Route: 048
  3. THYROID [Concomitant]
     Active Substance: LEVOTHYROXINE\LIOTHYRONINE
  4. ASACOL HD [Suspect]
     Active Substance: MESALAMINE
     Indication: CROHN^S DISEASE
     Route: 048
  5. ACYCLOVIR. [Concomitant]
     Active Substance: ACYCLOVIR

REACTIONS (4)
  - Myalgia [Unknown]
  - Drug effect decreased [Not Recovered/Not Resolved]
  - Tendon disorder [Unknown]
  - Crohn^s disease [Unknown]
